FAERS Safety Report 17307408 (Version 1)
Quarter: 2020Q1

REPORT INFORMATION
  Report Type: Spontaneous
  Country: GB (occurrence: GB)
  Receive Date: 20200123
  Receipt Date: 20200123
  Transmission Date: 20200409
  Serious: Yes (Other)
  Sender: FDA-Public Use
  Company Number: GB-OTSUKA-2020_001700

PATIENT
  Age: 35 Year
  Sex: Female

DRUGS (3)
  1. DEPAKINE CHRONO [Concomitant]
     Active Substance: VALPROATE SODIUM
     Indication: SCHIZOAFFECTIVE DISORDER
     Dosage: 500 MG, BID (IN THE EVENING)
     Route: 065
  2. SEROQUEL [Concomitant]
     Active Substance: QUETIAPINE FUMARATE
     Indication: SCHIZOAFFECTIVE DISORDER
     Dosage: 400 MG, BID (IN THE EVENING)
     Route: 065
  3. ABILIFY MAINTENA [Suspect]
     Active Substance: ARIPIPRAZOLE
     Indication: SCHIZOAFFECTIVE DISORDER
     Dosage: 400 MG, UNK
     Route: 065
     Dates: start: 20191102

REACTIONS (6)
  - Lip swelling [Unknown]
  - Urticaria [Unknown]
  - Disorganised speech [Unknown]
  - Product use in unapproved indication [Unknown]
  - Weight decreased [Unknown]
  - Eye swelling [Unknown]

NARRATIVE: CASE EVENT DATE: 201911
